FAERS Safety Report 6439705-X (Version None)
Quarter: 2009Q4

REPORT INFORMATION
  Report Type: 
  Country: None (occurrence: None)
  Receive Date: 20091113
  Receipt Date: 20091105
  Transmission Date: 20100525
  Serious: Yes (Other)
  Sender: FDA-Public Use
  Company Number: US-BAYER-200938600NA

PATIENT
  Age: 43 Year
  Sex: Female
  Weight: 64 kg

DRUGS (6)
  1. MAGNEVIST [Suspect]
     Indication: NUCLEAR MAGNETIC RESONANCE IMAGING
     Dosage: TOTAL DAILY DOSE: 14 ML  UNIT DOSE: 50 ML
     Route: 042
     Dates: start: 20091102, end: 20091102
  2. ADDERALL 10 [Concomitant]
  3. FLEXERIL [Concomitant]
  4. TRAMADOL HCL [Concomitant]
  5. NEURONTIN [Concomitant]
  6. MOBIC [Concomitant]

REACTIONS (3)
  - CHEST DISCOMFORT [None]
  - DYSPNOEA [None]
  - ERYTHEMA [None]
